FAERS Safety Report 21381725 (Version 2)
Quarter: 2022Q4

REPORT INFORMATION
  Report Type: Spontaneous
  Country: US (occurrence: US)
  Receive Date: 20220927
  Receipt Date: 20221005
  Transmission Date: 20230113
  Serious: No
  Sender: FDA-Public Use
  Company Number: US-PFIZER INC-PV202200062171

PATIENT
  Age: 81 Year
  Sex: Female

DRUGS (1)
  1. ESTROGENS, CONJUGATED\MEDROXYPROGESTERONE ACETATE [Suspect]
     Active Substance: ESTROGENS, CONJUGATED\MEDROXYPROGESTERONE ACETATE
     Dosage: UNK

REACTIONS (7)
  - Illness [Unknown]
  - Withdrawal syndrome [Unknown]
  - Memory impairment [Unknown]
  - Amnesia [Unknown]
  - Discharge [Unknown]
  - Muscular dystrophy [Unknown]
  - Muscle spasms [Unknown]
